FAERS Safety Report 6659917-X (Version None)
Quarter: 2010Q1

REPORT INFORMATION
  Report Type: 
  Country: None (occurrence: None)
  Receive Date: 20100326
  Receipt Date: 20100310
  Transmission Date: 20100710
  Serious: Yes (Life-Threatening, Hospitalization)
  Sender: FDA-Public Use
  Company Number: 1-21880113

PATIENT
  Age: 28 Year
  Sex: Male

DRUGS (3)
  1. CARBAMAZEPINE [Suspect]
  2. PHENOTHIAZINES [Suspect]
     Indication: PSYCHOTIC DISORDER
  3. HALOPERIDOL [Suspect]
     Indication: PSYCHOTIC DISORDER

REACTIONS (4)
  - GASTROINTESTINAL MOTILITY DISORDER [None]
  - HAEMORRHAGIC INFARCTION [None]
  - INTUSSUSCEPTION [None]
  - LYMPHADENOPATHY [None]
